FAERS Safety Report 26045988 (Version 1)
Quarter: 2025Q4

REPORT INFORMATION
  Report Type: Spontaneous
  Country: AU (occurrence: AU)
  Receive Date: 20251114
  Receipt Date: 20251114
  Transmission Date: 20260118
  Serious: Yes (Other)
  Sender: RANBAXY
  Company Number: AU-SUN PHARMACEUTICAL INDUSTRIES LTD-2025R1-536195

PATIENT

DRUGS (2)
  1. RISPERIDONE [Suspect]
     Active Substance: RISPERIDONE
     Indication: Product used for unknown indication
     Dosage: UNK
     Route: 065
  2. BENZTROPINE [Suspect]
     Active Substance: BENZTROPINE
     Indication: Product used for unknown indication
     Dosage: UNK
     Route: 065

REACTIONS (11)
  - Depressed level of consciousness [Unknown]
  - Agitation [Unknown]
  - Dystonia [Unknown]
  - Electrocardiogram QT prolonged [Unknown]
  - Hypotension [Unknown]
  - Off label use [Unknown]
  - Restlessness [Unknown]
  - Seizure [Unknown]
  - Somnolence [Unknown]
  - Tachycardia [Unknown]
  - Urinary retention [Unknown]
